FAERS Safety Report 7250920-8 (Version None)
Quarter: 2011Q1

REPORT INFORMATION
  Report Type: 
  Country: None (occurrence: None)
  Receive Date: 20110128
  Receipt Date: 20110119
  Transmission Date: 20110831
  Serious: Yes (Other)
  Sender: FDA-Public Use
  Company Number: A0908754A

PATIENT
  Sex: Female

DRUGS (1)
  1. PAXIL [Suspect]
     Indication: DEPRESSION
     Route: 048
     Dates: start: 20040101, end: 20080101

REACTIONS (8)
  - SUICIDAL IDEATION [None]
  - WEIGHT INCREASED [None]
  - FEELING ABNORMAL [None]
  - SUICIDE ATTEMPT [None]
  - IMPULSIVE BEHAVIOUR [None]
  - ANGER [None]
  - ABNORMAL BEHAVIOUR [None]
  - DRUG INEFFECTIVE [None]
